FAERS Safety Report 9808147 (Version 1)
Quarter: 2014Q1

REPORT INFORMATION
  Report Type: Spontaneous
  Country: US (occurrence: None)
  Receive Date: 20140108
  Receipt Date: 20140108
  Transmission Date: 20141002
  Serious: Yes (Death)
  Sender: FDA-Public Use
  Company Number: C-13-0743

PATIENT
  Age: 62 Year
  Sex: Female

DRUGS (11)
  1. VALPROIC ACID [Suspect]
     Route: 048
  2. LEVETIRACETAM 250 MG [Concomitant]
  3. DONEPEZIL 10 MG [Concomitant]
  4. ANASTRAZOLE 1 MG [Concomitant]
  5. METFORMIN 500 MG [Concomitant]
  6. SIMVASTATIN [Concomitant]
  7. FENOFIBRATE 200 MG [Concomitant]
  8. SALSALATE 750MG [Concomitant]
  9. PROPANOLOL ER 100 MG [Concomitant]
  10. ZIPRASIDONE 80 MG [Concomitant]
  11. ALPRAZOLAM 1 MG [Concomitant]

REACTIONS (3)
  - Toxicity to various agents [None]
  - Accidental death [None]
  - Accidental overdose [None]
